FAERS Safety Report 23692341 (Version 1)
Quarter: 2024Q2

REPORT INFORMATION
  Report Type: Other
  Country: CN (occurrence: CN)
  Receive Date: 20240401
  Receipt Date: 20240401
  Transmission Date: 20240716
  Serious: Yes (Life-Threatening, Other)
  Sender: FDA-Public Use
  Company Number: CN-GE HEALTHCARE-2024CSU002984

PATIENT
  Age: 66 Year
  Sex: Female
  Weight: 47.5 kg

DRUGS (5)
  1. OMNIPAQUE [Suspect]
     Active Substance: IOHEXOL
     Indication: Computerised tomogram abdomen
     Dosage: 100 ML, TOTAL
     Route: 041
     Dates: start: 20240214, end: 20240214
  2. AMLODIPINE BESYLATE [Concomitant]
     Active Substance: AMLODIPINE BESYLATE
     Indication: Hypertension
     Dosage: UNK
  3. DEXAMETHASONE ACETATE [Concomitant]
     Active Substance: DEXAMETHASONE ACETATE
     Indication: Bronchitis chronic
     Dosage: 1.5 MG, QD
     Route: 048
  4. DEXAMETHASONE ACETATE [Concomitant]
     Active Substance: DEXAMETHASONE ACETATE
     Indication: Emphysema
  5. POTASSIUM CHLORIDE [Concomitant]
     Active Substance: POTASSIUM CHLORIDE
     Indication: Hypokalaemia
     Dosage: 0.5 GM, QD
     Route: 048

REACTIONS (4)
  - Ventricular fibrillation [Unknown]
  - Cardiac arrest [Unknown]
  - Arteriospasm coronary [Unknown]
  - Seizure [Unknown]

NARRATIVE: CASE EVENT DATE: 20240214
